FAERS Safety Report 10961016 (Version 1)
Quarter: 2015Q1

REPORT INFORMATION
  Report Type: Spontaneous
  Country: JP (occurrence: JP)
  Receive Date: 20150327
  Receipt Date: 20150327
  Transmission Date: 20150721
  Serious: Yes (Death)
  Sender: FDA-Public Use
  Company Number: JP-CELGENE-JPN-2015034672

PATIENT
  Age: 78 Year
  Sex: Male

DRUGS (2)
  1. REVLIMID [Suspect]
     Active Substance: LENALIDOMIDE
     Indication: PLASMA CELL MYELOMA
     Dosage: 5 MILLIGRAM
     Route: 048
     Dates: start: 20150309, end: 20150312
  2. LENADEX [Suspect]
     Active Substance: DEXAMETHASONE ACETATE
     Indication: PLASMA CELL MYELOMA
     Route: 048
     Dates: start: 20150309, end: 20150309

REACTIONS (1)
  - General physical health deterioration [Fatal]

NARRATIVE: CASE EVENT DATE: 20150313
